FAERS Safety Report 9508642 (Version 1)
Quarter: 2013Q3

REPORT INFORMATION
  Report Type: Spontaneous
  Country: GB (occurrence: GB)
  Receive Date: 20130909
  Receipt Date: 20130909
  Transmission Date: 20140515
  Serious: Yes (Death, Hospitalization, Other)
  Sender: FDA-Public Use
  Company Number: GB-PFIZER INC-2013256833

PATIENT
  Age: 49 Year
  Sex: Female

DRUGS (3)
  1. PREGABALIN [Suspect]
     Dosage: 3150MG
  2. ZOPICLONE [Suspect]
     Dosage: 105MG
  3. DIAZEPAM [Concomitant]
     Dosage: 245MG

REACTIONS (11)
  - Intentional overdose [Fatal]
  - Toxicity to various agents [Fatal]
  - Upper gastrointestinal haemorrhage [Unknown]
  - Haematemesis [Unknown]
  - Gaze palsy [Unknown]
  - Posturing [Unknown]
  - Coma scale abnormal [Unknown]
  - Blood pressure decreased [Unknown]
  - Heart rate decreased [Unknown]
  - Oxygen saturation decreased [Unknown]
  - Pulmonary oedema [Unknown]
